FAERS Safety Report 7819362-8 (Version None)
Quarter: 2011Q4

REPORT INFORMATION
  Report Type: 
  Country: None (occurrence: None)
  Receive Date: 20111018
  Receipt Date: 20110610
  Transmission Date: 20120403
  Serious: No
  Sender: FDA-Public Use
  Company Number: US-ASTRAZENECA-2011SE35991

PATIENT
  Age: 86 Year
  Sex: Female

DRUGS (2)
  1. SYMBICORT [Suspect]
     Indication: DYSPNOEA
     Dosage: 160/4.5 TWO TIMES DAILY
     Route: 055
     Dates: start: 20110501
  2. ZERTEC [Concomitant]
     Indication: SINUS DISORDER

REACTIONS (1)
  - OCULAR HYPERAEMIA [None]
